FAERS Safety Report 5603115-5 (Version None)
Quarter: 2008Q1

REPORT INFORMATION
  Report Type: 
  Country: None (occurrence: None)
  Receive Date: 20080123
  Receipt Date: 20080111
  Transmission Date: 20080703
  Serious: Yes (Other)
  Sender: FDA-Public Use
  Company Number: CHPA2008US00807

PATIENT
  Age: 19 Year
  Sex: Female

DRUGS (1)
  1. EX-LAX REG STR CHOCOLATED LAX PCS (NCH)(SENNA GLYCOSIDES (CA SALTS OF [Suspect]
     Indication: WEIGHT DECREASED
     Dosage: 720 MG, ORAL
     Route: 048

REACTIONS (3)
  - INTENTIONAL DRUG MISUSE [None]
  - NO ADVERSE EVENT [None]
  - OVERDOSE [None]
